FAERS Safety Report 7360576-1 (Version None)
Quarter: 2011Q1

REPORT INFORMATION
  Report Type: 
  Country: None (occurrence: None)
  Receive Date: 20110318
  Receipt Date: 20110310
  Transmission Date: 20110831
  Serious: Yes (Hospitalization)
  Sender: FDA-Public Use
  Company Number: JP-ELI_LILLY_AND_COMPANY-JP201101001543

PATIENT
  Sex: Female
  Weight: 53 kg

DRUGS (9)
  1. DULOXETINE HYDROCHLORIDE [Suspect]
     Dosage: 60 MG, DAILY (1/D)
     Route: 048
     Dates: start: 20101206, end: 20101213
  2. REMERON [Concomitant]
     Dosage: 15 MG, DAILY (1/D)
     Dates: start: 20101120, end: 20101205
  3. NORVASC [Concomitant]
     Indication: HYPERTENSION
     Dosage: 5 MG, DAILY (1/D)
  4. FLUNITRAZEPAM [Concomitant]
     Indication: INSOMNIA
     Dosage: 1 MG, DAILY (1/D)
  5. BLOPRESS [Concomitant]
     Indication: HYPERTENSION
     Dosage: 8 MG, DAILY (1/D)
  6. MIRTAZAPINE [Concomitant]
     Dosage: 15 MG, DAILY (1/D)
     Dates: start: 20101120, end: 20101204
  7. ZYPREXA [Concomitant]
     Indication: PSYCHOTIC DISORDER
     Dosage: 1.25 MG, DAILY (1/D)
  8. DULOXETINE HYDROCHLORIDE [Suspect]
     Indication: DEPRESSION
     Dosage: 40 MG, DAILY (1/D)
     Route: 048
     Dates: start: 20101115, end: 20101205
  9. GASTER [Concomitant]
     Indication: PROPHYLAXIS
     Dosage: 20 MG, DAILY (1/D)
     Route: 048
     Dates: start: 20101115

REACTIONS (2)
  - HEPATIC FUNCTION ABNORMAL [None]
  - DECREASED APPETITE [None]
